FAERS Safety Report 8843572 (Version 2)
Quarter: 2012Q4

REPORT INFORMATION
  Report Type: 
  Country: US (occurrence: US)
  Receive Date: 20121016
  Receipt Date: 20121114
  Transmission Date: 20130627
  Serious: Yes (Death)
  Sender: FDA-Public Use
  Company Number: US-ROCHE-1136675

PATIENT
  Sex: Female

DRUGS (1)
  1. XELODA [Suspect]
     Indication: GALLBLADDER CANCER
     Route: 065

REACTIONS (1)
  - Disease progression [Fatal]
